FAERS Safety Report 18072458 (Version 1)
Quarter: 2020Q3

REPORT INFORMATION
  Report Type: Spontaneous
  Country: US (occurrence: US)
  Receive Date: 20200725
  Receipt Date: 20200725
  Transmission Date: 20201103
  Serious: Yes (Death)
  Sender: FDA-Public Use
  Company Number: None

PATIENT
  Sex: Female
  Weight: 77 kg

DRUGS (2)
  1. CYTARABINE. [Suspect]
     Active Substance: CYTARABINE
     Dates: end: 20200312
  2. DAUNORUBICIN [Suspect]
     Active Substance: DAUNORUBICIN

REACTIONS (1)
  - Performance status decreased [None]

NARRATIVE: CASE EVENT DATE: 20200427
